FAERS Safety Report 7808094-8 (Version None)
Quarter: 2011Q4

REPORT INFORMATION
  Report Type: 
  Country: None (occurrence: None)
  Receive Date: 20111011
  Receipt Date: 20111007
  Transmission Date: 20120403
  Serious: Yes (Life-Threatening)
  Sender: FDA-Public Use
  Company Number: GB-ROCHE-1000308

PATIENT
  Age: 57 Year
  Sex: Male
  Weight: 92.8 kg

DRUGS (1)
  1. VEMURAFENIB [Suspect]
     Indication: METASTATIC MALIGNANT MELANOMA
     Route: 048
     Dates: start: 20110920, end: 20110924

REACTIONS (1)
  - HAEMATOMA [None]
